FAERS Safety Report 16839139 (Version 1)
Quarter: 2019Q3

REPORT INFORMATION
  Report Type: Spontaneous
  Country: US (occurrence: US)
  Receive Date: 20190923
  Receipt Date: 20190923
  Transmission Date: 20191005
  Serious: No
  Sender: FDA-Public Use
  Company Number: US-GLAXOSMITHKLINE-US2019167255

PATIENT
  Age: 85 Year
  Sex: Female

DRUGS (1)
  1. ABREVA [Suspect]
     Active Substance: DOCOSANOL
     Indication: ORAL HERPES
     Dosage: UNK
     Dates: start: 20190911, end: 20190913

REACTIONS (11)
  - Application site induration [Recovering/Resolving]
  - Swelling [Recovering/Resolving]
  - Drug hypersensitivity [Recovering/Resolving]
  - Lip haemorrhage [Recovering/Resolving]
  - Pruritus generalised [Recovering/Resolving]
  - Feeling hot [Recovering/Resolving]
  - Chapped lips [Recovering/Resolving]
  - Lip swelling [Recovering/Resolving]
  - Inappropriate schedule of product administration [Unknown]
  - Muscle tightness [Recovering/Resolving]
  - Eye pruritus [Recovering/Resolving]

NARRATIVE: CASE EVENT DATE: 20190911
